FAERS Safety Report 14571460 (Version 1)
Quarter: 2018Q1

REPORT INFORMATION
  Report Type: Report from Study
  Country: US (occurrence: US)
  Receive Date: 20180226
  Receipt Date: 20180226
  Transmission Date: 20180509
  Serious: Yes (Hospitalization)
  Sender: FDA-Public Use
  Company Number: PHHO2006US023157

PATIENT
  Age: 50 Year
  Sex: Female
  Weight: 75.9 kg

DRUGS (1)
  1. TYVERB [Suspect]
     Active Substance: LAPATINIB
     Indication: METASTASES TO CENTRAL NERVOUS SYSTEM
     Dosage: 750 MG, BID
     Route: 048
     Dates: start: 20060419

REACTIONS (1)
  - Cognitive disorder [Recovered/Resolved]

NARRATIVE: CASE EVENT DATE: 20060707
